FAERS Safety Report 24976532 (Version 2)
Quarter: 2025Q3

REPORT INFORMATION
  Report Type: Spontaneous
  Country: GB (occurrence: GB)
  Receive Date: 20250217
  Receipt Date: 20250816
  Transmission Date: 20251020
  Serious: No
  Sender: ALEXION PHARMACEUTICALS
  Company Number: GB-AstraZeneca-2016SE71668

PATIENT
  Sex: Female

DRUGS (2)
  1. NEXIUM [Suspect]
     Active Substance: ESOMEPRAZOLE MAGNESIUM
  2. NEXIUM [Suspect]
     Active Substance: ESOMEPRAZOLE MAGNESIUM

REACTIONS (1)
  - Tinnitus [Unknown]
